FAERS Safety Report 24881976 (Version 3)
Quarter: 2025Q1

REPORT INFORMATION
  Report Type: Spontaneous
  Country: US (occurrence: US)
  Receive Date: 20250124
  Receipt Date: 20250307
  Transmission Date: 20250409
  Serious: No
  Sender: ROCHE
  Company Number: US-ROCHE-10000185419

PATIENT
  Age: 40 Year
  Sex: Female

DRUGS (1)
  1. XOLAIR [Suspect]
     Active Substance: OMALIZUMAB
     Indication: Product used for unknown indication
     Route: 058

REACTIONS (5)
  - Pain [Unknown]
  - Accidental exposure to product [Unknown]
  - Product complaint [Unknown]
  - Device defective [Unknown]
  - Device malfunction [Unknown]

NARRATIVE: CASE EVENT DATE: 20250116
